FAERS Safety Report 9979490 (Version 1)
Quarter: 2014Q1

REPORT INFORMATION
  Report Type: Spontaneous
  Country: US (occurrence: US)
  Receive Date: 20140306
  Receipt Date: 20140306
  Transmission Date: 20141002
  Serious: No
  Sender: FDA-Public Use
  Company Number: US-ABBVIE-13P-163-1173004-00

PATIENT
  Age: 52 Year
  Sex: Female

DRUGS (6)
  1. HUMIRA [Suspect]
     Indication: CROHN^S DISEASE
     Dates: start: 201106
  2. SYNTHROID [Concomitant]
     Indication: HYPOTHYROIDISM
  3. HORMONES [Concomitant]
     Indication: HORMONE REPLACEMENT THERAPY
  4. VITAMIN B [Concomitant]
     Indication: VITAMIN SUPPLEMENTATION
  5. VITAMIN B 12 [Concomitant]
     Indication: VITAMIN SUPPLEMENTATION
  6. IRON [Concomitant]
     Indication: MINERAL SUPPLEMENTATION

REACTIONS (4)
  - Neuropathy peripheral [Not Recovered/Not Resolved]
  - Paraesthesia [Not Recovered/Not Resolved]
  - Hypoaesthesia [Not Recovered/Not Resolved]
  - Pain in extremity [Not Recovered/Not Resolved]
